FAERS Safety Report 5760862-2 (Version None)
Quarter: 2008Q2

REPORT INFORMATION
  Report Type: 
  Country: None (occurrence: None)
  Receive Date: 20080606
  Receipt Date: 20080530
  Transmission Date: 20081010
  Serious: Yes (Hospitalization)
  Sender: FDA-Public Use
  Company Number: DE-WYE-G01608108

PATIENT
  Sex: Female

DRUGS (5)
  1. LORAZEPAM [Suspect]
     Dosage: OVERDOSE AMOUNT 20MG
     Route: 048
     Dates: start: 20080529, end: 20080529
  2. SEROQUEL [Suspect]
     Dosage: UNKNOWN AMOUNT (OVERDOSE AMOUNT UNKNOWN)
     Route: 048
     Dates: start: 20080529, end: 20080529
  3. DIAZEPAM [Suspect]
     Dosage: OVERDOSE AMOUNT 10MG
     Route: 048
     Dates: start: 20080529, end: 20080529
  4. VENLAFAXINE HCL [Suspect]
     Dosage: UNKNOWN AMOUNT (OVERDOSE AMOUNT UNKNOWN)
     Route: 048
     Dates: start: 20080529, end: 20080529
  5. ALCOHOL [Suspect]
     Dosage: UNKNOWN AMOUNT (OVERDOSE AMOUNT UNKNOWN)
     Route: 048
     Dates: start: 20080529, end: 20080529

REACTIONS (3)
  - DRUG ABUSE [None]
  - INTENTIONAL OVERDOSE [None]
  - VOMITING [None]
